FAERS Safety Report 23325394 (Version 1)
Quarter: 2023Q4

REPORT INFORMATION
  Report Type: Spontaneous
  Country: US (occurrence: US)
  Receive Date: 20231221
  Receipt Date: 20231221
  Transmission Date: 20240110
  Serious: Yes (Other)
  Sender: FDA-Public Use
  Company Number: US-ORGANON-O2312USA000489

PATIENT
  Age: 23 Year
  Sex: Female
  Weight: 92.971 kg

DRUGS (2)
  1. NEXPLANON [Suspect]
     Active Substance: ETONOGESTREL
     Indication: Contraception
     Dosage: 1 IMPLANT, 68 MG 3 YEARS
     Route: 059
     Dates: start: 20230331, end: 20231128
  2. NEXPLANON [Suspect]
     Active Substance: ETONOGESTREL
     Dosage: 1 IMPLANT
     Route: 059
     Dates: start: 20231128

REACTIONS (8)
  - Device breakage [Recovered/Resolved]
  - Menstruation irregular [Unknown]
  - Pain in extremity [Unknown]
  - Implant site swelling [Unknown]
  - Implant site pain [Unknown]
  - Device placement issue [Unknown]
  - Vaginal haemorrhage [Unknown]
  - Abnormal uterine bleeding [Unknown]

NARRATIVE: CASE EVENT DATE: 20231128
